FAERS Safety Report 5796403-3 (Version None)
Quarter: 2008Q3

REPORT INFORMATION
  Report Type: 
  Country: None (occurrence: None)
  Receive Date: 20080701
  Receipt Date: 20080624
  Transmission Date: 20090109
  Serious: Yes (Other)
  Sender: FDA-Public Use
  Company Number: US-BAYER-200812576BCC

PATIENT
  Age: 85 Year
  Sex: Male
  Weight: 82 kg

DRUGS (7)
  1. ALEVE (CAPLET) [Suspect]
     Indication: DRUG USE FOR UNKNOWN INDICATION
     Dosage: TOTAL DAILY DOSE: 110 MG  UNIT DOSE: 110 MG
     Route: 048
     Dates: start: 20070101
  2. ALEVE (CAPLET) [Suspect]
     Dosage: TOTAL DAILY DOSE: 110 MG  UNIT DOSE: 110 MG
     Route: 048
     Dates: start: 20080101, end: 20080601
  3. ASPIRIN [Suspect]
  4. LISINOPRIL AND HYDROCHLOROTHIAZIDE [Concomitant]
  5. GLUCOSAMINE [Concomitant]
  6. SAW PALMETTO [Concomitant]
  7. MULTI-VITAMIN [Concomitant]

REACTIONS (2)
  - BLOOD URINE PRESENT [None]
  - DYSPEPSIA [None]
